FAERS Safety Report 17991152 (Version 2)
Quarter: 2020Q3

REPORT INFORMATION
  Report Type: Spontaneous
  Country: US (occurrence: US)
  Receive Date: 20200707
  Receipt Date: 20200825
  Transmission Date: 20201103
  Serious: Yes (Other)
  Sender: FDA-Public Use
  Company Number: US-BRISTOL-MYERS SQUIBB COMPANY-BMS-2020-051737

PATIENT
  Age: 85 Year
  Sex: Male

DRUGS (3)
  1. TYVASO [Suspect]
     Active Substance: TREPROSTINIL
     Dosage: 42 MICROGRAM, QID
     Dates: end: 20200810
  2. TYVASO [Suspect]
     Active Substance: TREPROSTINIL
     Indication: PULMONARY ARTERIAL HYPERTENSION
     Dosage: 18 MICROGRAM, QID
     Dates: start: 202006, end: 202006
  3. WARFARIN SODIUM. [Suspect]
     Active Substance: WARFARIN SODIUM
     Indication: PRODUCT USED FOR UNKNOWN INDICATION
     Route: 065

REACTIONS (4)
  - Productive cough [Unknown]
  - Haemoptysis [Unknown]
  - Chest discomfort [Unknown]
  - Oropharyngeal pain [Unknown]

NARRATIVE: CASE EVENT DATE: 202006
